FAERS Safety Report 7163413-3 (Version None)
Quarter: 2010Q4

REPORT INFORMATION
  Report Type: 
  Country: None (occurrence: None)
  Receive Date: 20101215
  Receipt Date: 20100414
  Transmission Date: 20110411
  Serious: Yes (Disabling)
  Sender: FDA-Public Use
  Company Number: CA-PFIZER INC-2010022697

PATIENT
  Age: 48 Year
  Sex: Female
  Weight: 102.4 kg

DRUGS (2)
  1. LYRICA [Suspect]
     Indication: NEURALGIA
     Dosage: 100 MG, UNK
     Dates: start: 20090601
  2. LYRICA [Suspect]
     Dosage: 50 MG, (1 IN THE MORNING, 1 IN THE AFTERNOON, AND 2 AT BEDTIME)
     Dates: start: 20090707, end: 20091201

REACTIONS (13)
  - ABNORMAL BEHAVIOUR [None]
  - CRYING [None]
  - IRRITABILITY [None]
  - NIGHTMARE [None]
  - PAIN [None]
  - PALPITATIONS [None]
  - SEDATION [None]
  - SOCIAL AVOIDANT BEHAVIOUR [None]
  - SUICIDAL IDEATION [None]
  - THINKING ABNORMAL [None]
  - URINARY RETENTION [None]
  - VISUAL IMPAIRMENT [None]
  - WEIGHT INCREASED [None]
